FAERS Safety Report 19009726 (Version 2)
Quarter: 2021Q1

REPORT INFORMATION
  Report Type: Spontaneous
  Country: CN (occurrence: CN)
  Receive Date: 20210315
  Receipt Date: 20210322
  Transmission Date: 20210420
  Serious: No
  Sender: FDA-Public Use
  Company Number: CN-TOPROL-2021000046

PATIENT
  Age: 88 Year
  Sex: Male

DRUGS (2)
  1. BETALOC [Suspect]
     Active Substance: METOPROLOL
     Route: 048
  2. BETALOC [Suspect]
     Active Substance: METOPROLOL
     Route: 048

REACTIONS (1)
  - Wrong technique in product usage process [Unknown]
